FAERS Safety Report 22945874 (Version 2)
Quarter: 2023Q4

REPORT INFORMATION
  Report Type: Report from Study
  Country: US (occurrence: US)
  Receive Date: 20230914
  Receipt Date: 20231009
  Transmission Date: 20240110
  Serious: Yes (Hospitalization)
  Sender: FDA-Public Use
  Company Number: US-PFIZER INC-PV202300147044

PATIENT
  Age: 78 Year
  Sex: Female
  Weight: 48.8 kg

DRUGS (12)
  1. VINCRISTINE SULFATE [Suspect]
     Active Substance: VINCRISTINE SULFATE
     Dosage: 2 MG, CYCLE: 1,3,5,7, DAY 1, DAY 8.
     Route: 042
     Dates: start: 20230611
  2. INOTUZUMAB OZOGAMICIN [Suspect]
     Active Substance: INOTUZUMAB OZOGAMICIN
     Dosage: CYCLE 1: 0.6 MG/M2 D2, 0.3 MG/M2 D8, TOTAL 0.9 MG/M2
     Route: 042
     Dates: start: 20230611
  3. INOTUZUMAB OZOGAMICIN [Suspect]
     Active Substance: INOTUZUMAB OZOGAMICIN
     Dosage: CYCLES 2-4: 0.3 MG/M2 D2, 0.3 MG/M2 D8, TOTAL 0.6 MG/M2
     Route: 042
  4. CYTARABINE [Suspect]
     Active Substance: CYTARABINE
     Dosage: 100 MG, CYCLE: 1-4, DAY 2, DAY8.
     Route: 037
     Dates: start: 20230612
  5. CYTARABINE [Suspect]
     Active Substance: CYTARABINE
     Dosage: CYCLE: 2,4,6,8, DOSE: 0.5 G/M2/DOSE, SCHEDULE: EVERY 12HRS X 4 DOSES, DAYS 2, 3.
     Route: 042
  6. RITUXIMAB [Suspect]
     Active Substance: RITUXIMAB
     Dosage: 375 MG/M2, CYCLE: 1-4, DAY2, DAY 8.
     Route: 042
     Dates: start: 20230612
  7. METHOTREXATE SODIUM [Suspect]
     Active Substance: METHOTREXATE SODIUM
     Dosage: 12 MG, CYCLE: 1-4,  DAY 2, DAY8.
     Route: 037
  8. METHOTREXATE SODIUM [Suspect]
     Active Substance: METHOTREXATE SODIUM
     Dosage: 250 MG/M2, CYCLE: 2,4,6,8, DAY 1
     Route: 042
  9. METHYLPREDNISOLONE ACETATE [Suspect]
     Active Substance: METHYLPREDNISOLONE ACETATE
     Dosage: CYCLE: 2,4,6,8, DOSE: 50 MG, SCHEDULE: EVERY 12HRS X 6 DOSES, DAYS 1- 3.
     Route: 042
  10. CYCLOPHOSPHAMIDE [Suspect]
     Active Substance: CYCLOPHOSPHAMIDE
     Dosage: CYCLE: 1,3,5,7, DOSE: 150 MG/M2, SCHEDULE: EVERY 12 HRS X 6 DOSES, DAYS 1-3.
     Route: 042
     Dates: start: 20230611
  11. DEXAMETHASONE [Suspect]
     Active Substance: DEXAMETHASONE
     Dosage: 20 MG, CYCLE: 1,3,5,7, DAYS 1-4, DAYS 11-14.
     Dates: start: 20230611
  12. MESNA [Suspect]
     Active Substance: MESNA
     Dosage: 300 MG/M2, CYCLE: 1,3,5,7,  DAYS 1-3.
     Dates: start: 20230611

REACTIONS (1)
  - Embolism [Recovering/Resolving]

NARRATIVE: CASE EVENT DATE: 20230807
